FAERS Safety Report 6251996-7 (Version None)
Quarter: 2009Q2

REPORT INFORMATION
  Report Type: 
  Country: None (occurrence: None)
  Receive Date: 20090630
  Receipt Date: 20050106
  Transmission Date: 20091009
  Serious: Yes (Death, Hospitalization)
  Sender: FDA-Public Use
  Company Number: US-ROCHE-638344

PATIENT
  Sex: Male

DRUGS (7)
  1. ENFUVIRTIDE [Suspect]
     Route: 065
     Dates: start: 20030826, end: 20050201
  2. NORVIR [Concomitant]
     Dosage: FREQUENCY: QD.
     Dates: start: 20031202, end: 20050106
  3. REYATAZ [Concomitant]
     Dosage: FREQUENCY: QD.
     Dates: start: 20031202, end: 20050106
  4. VIDEX EC [Concomitant]
     Dosage: FREQUENCY: QD.
     Dates: start: 20040127, end: 20050201
  5. APTIVUS [Concomitant]
     Dosage: FREQUENCY: QD.
     Dates: start: 20050106, end: 20050201
  6. BACTRIM [Concomitant]
     Dosage: FREQUENCY: TIW.
     Dates: start: 20040914, end: 20050106
  7. MEPRON [Concomitant]
     Dosage: FREQUENCY: QD.
     Dates: start: 20040914, end: 20050201

REACTIONS (2)
  - DEATH [None]
  - DEHYDRATION [None]
